FAERS Safety Report 25913851 (Version 1)
Quarter: 2025Q4

REPORT INFORMATION
  Report Type: Spontaneous
  Country: US (occurrence: US)
  Receive Date: 20251013
  Receipt Date: 20251013
  Transmission Date: 20260118
  Serious: No
  Sender: Hibrow Healthcare
  Company Number: US-Hibrow Healthcare Private Ltd-2186448

PATIENT

DRUGS (1)
  1. BACLOFEN [Suspect]
     Active Substance: BACLOFEN
     Indication: Muscle tightness

REACTIONS (3)
  - Muscle spasticity [Unknown]
  - Condition aggravated [Unknown]
  - Muscle tightness [Unknown]
